FAERS Safety Report 16051651 (Version 1)
Quarter: 2019Q1

REPORT INFORMATION
  Report Type: Spontaneous
  Country: IT (occurrence: IT)
  Receive Date: 20190308
  Receipt Date: 20190308
  Transmission Date: 20190418
  Serious: Yes (Disabling)
  Sender: FDA-Public Use
  Company Number: IT-BIOVITRUM-2019IT0444

PATIENT
  Age: 39 Year
  Sex: Female
  Weight: 109 kg

DRUGS (1)
  1. KINERET [Suspect]
     Active Substance: ANAKINRA
     Indication: VASCULITIS
     Route: 058
     Dates: start: 20190130, end: 20190207

REACTIONS (3)
  - Lymph node palpable [Not Recovered/Not Resolved]
  - Erythema [Not Recovered/Not Resolved]
  - Abscess [Not Recovered/Not Resolved]

NARRATIVE: CASE EVENT DATE: 20190206
